FAERS Safety Report 9895009 (Version 1)
Quarter: 2014Q1

REPORT INFORMATION
  Report Type: Spontaneous
  Country: US (occurrence: US)
  Receive Date: 20140213
  Receipt Date: 20140213
  Transmission Date: 20141002
  Serious: No
  Sender: FDA-Public Use
  Company Number: US-BRISTOL-MYERS SQUIBB COMPANY-17331208

PATIENT
  Age: 53 Year
  Sex: Male

DRUGS (11)
  1. ABATACEPT SUBQ INJECTION 125MG/ML [Suspect]
     Dosage: 1 DF:125MG/ML
     Route: 058
  2. CYMBALTA [Concomitant]
     Dosage: CAPS
  3. FLUTICASONE [Concomitant]
     Dosage: FLUTICASONE SPR
  4. PREDNISONE [Concomitant]
     Dosage: TABS
  5. DIOVAN [Concomitant]
     Dosage: TABS
  6. OMEPRAZOLE [Concomitant]
     Dosage: CAPS
  7. ALLOPURINOL [Concomitant]
     Dosage: TABS
  8. FLOMAX [Concomitant]
     Dosage: CAPS
  9. CLARITIN [Concomitant]
     Dosage: CAPS
  10. HYDROCHLOROTHIAZIDE [Concomitant]
     Dosage: TABS
  11. HYDROCODONE + ACETAMINOPHEN [Concomitant]
     Dosage: TABS

REACTIONS (1)
  - Pain [Unknown]
